FAERS Safety Report 4597885-5 (Version None)
Quarter: 2005Q1

REPORT INFORMATION
  Report Type: 
  Country: None (occurrence: None)
  Receive Date: 20050125
  Receipt Date: 20040823
  Transmission Date: 20050727
  Serious: No
  Sender: FDA-Public Use
  Company Number: USA040876230

PATIENT
  Age: 80 Year
  Sex: Female

DRUGS (3)
  1. FORTEO [Suspect]
     Indication: OSTEOPOROSIS
     Dates: start: 20040101
  2. VIACTIV /USA/(CALCIUM) [Concomitant]
  3. LORATADINE [Concomitant]

REACTIONS (3)
  - FATIGUE [None]
  - NERVOUSNESS [None]
  - STOMACH DISCOMFORT [None]
